FAERS Safety Report 10336737 (Version 2)
Quarter: 2014Q3

REPORT INFORMATION
  Report Type: Spontaneous
  Country: US (occurrence: US)
  Receive Date: 20140723
  Receipt Date: 20140723
  Transmission Date: 20150326
  Serious: Yes (Hospitalization, Disabling)
  Sender: FDA-Public Use
  Company Number: US-GLAXOSMITHKLINE-A0835089A

PATIENT
  Sex: Female

DRUGS (1)
  1. AVANDIA [Suspect]
     Active Substance: ROSIGLITAZONE MALEATE
     Indication: DIABETES MELLITUS
     Route: 065
     Dates: start: 2001, end: 2005

REACTIONS (8)
  - Cardiac failure chronic [Unknown]
  - Vascular dementia [Unknown]
  - Cerebrovascular accident [Unknown]
  - Angina unstable [Unknown]
  - Coronary artery disease [Unknown]
  - Hemiplegia [Unknown]
  - Hemiparesis [Unknown]
  - Cardiac disorder [Unknown]
